FAERS Safety Report 19230671 (Version 1)
Quarter: 2021Q2

REPORT INFORMATION
  Report Type: Spontaneous
  Country: US (occurrence: US)
  Receive Date: 20210507
  Receipt Date: 20210507
  Transmission Date: 20210717
  Serious: Yes (Other)
  Sender: FDA-Public Use
  Company Number: None

PATIENT
  Age: 33 Year
  Sex: Female
  Weight: 54.9 kg

DRUGS (2)
  1. ZEPATIER [Suspect]
     Active Substance: ELBASVIR\GRAZOPREVIR
     Indication: HEPATITIS C
     Route: 048
     Dates: start: 20210414
  2. SOVALDI [Suspect]
     Active Substance: SOFOSBUVIR
     Indication: HEPATITIS C
     Route: 048
     Dates: start: 20210414

REACTIONS (10)
  - Nausea [None]
  - Urticaria [None]
  - Vomiting [None]
  - Headache [None]
  - Oropharyngeal pain [None]
  - Fatigue [None]
  - Asthenia [None]
  - Malaise [None]
  - Pyrexia [None]
  - Abdominal pain upper [None]

NARRATIVE: CASE EVENT DATE: 20210419
